FAERS Safety Report 8865222 (Version 1)
Quarter: 2012Q4

REPORT INFORMATION
  Report Type: 
  Country: US (occurrence: US)
  Receive Date: 20121024
  Receipt Date: 20121024
  Transmission Date: 20130627
  Serious: No
  Sender: FDA-Public Use
  Company Number: US-AMGEN-USASP2012001710

PATIENT
  Sex: Female
  Weight: 68.03 kg

DRUGS (10)
  1. ENBREL [Suspect]
     Indication: PRODUCT USED FOR UNKNOWN INDICATION
     Dosage: 50 mg, qwk
  2. NORVASC [Concomitant]
     Dosage: 2.5 mg, UNK
  3. MOTRIN [Concomitant]
     Dosage: 400 mg, UNK
  4. SYNTHROID [Concomitant]
     Dosage: 125 mug, UNK
  5. DIOVAN [Concomitant]
     Dosage: 160 mg, UNK
  6. ARAVA [Concomitant]
     Dosage: 10 mg, UNK
  7. HYDRALAZINE [Concomitant]
     Dosage: 25 mg, UNK
  8. TOPROL-XL [Concomitant]
     Dosage: 25 mg, UNK
  9. MAGNESIUM [Concomitant]
     Dosage: 250 mg, UNK
  10. MUCINEX COUGH [Concomitant]
     Dosage: UNK

REACTIONS (1)
  - Sinus congestion [Unknown]
